FAERS Safety Report 17273960 (Version 1)
Quarter: 2020Q1

REPORT INFORMATION
  Report Type: Spontaneous
  Country: NL (occurrence: NL)
  Receive Date: 20200115
  Receipt Date: 20200115
  Transmission Date: 20200409
  Serious: Yes (Life-Threatening, Hospitalization)
  Sender: FDA-Public Use
  Company Number: NL-ELI_LILLY_AND_COMPANY-NL202001004428

PATIENT
  Sex: Male
  Weight: 100 kg

DRUGS (1)
  1. ZYPADHERA [Suspect]
     Active Substance: OLANZAPINE PAMOATE
     Indication: MANIA
     Dosage: 405 MG, MONTHLY (1/M)
     Route: 065
     Dates: start: 201907, end: 20191219

REACTIONS (2)
  - Cardio-respiratory arrest [Recovered/Resolved]
  - Post-injection delirium sedation syndrome [Recovered/Resolved]
